FAERS Safety Report 5126508-1 (Version None)
Quarter: 2006Q4

REPORT INFORMATION
  Report Type: 
  Country: None (occurrence: None)
  Receive Date: 20061010
  Receipt Date: 20060927
  Transmission Date: 20070319
  Serious: Yes (Hospitalization, Disabling, Other)
  Sender: FDA-Public Use
  Company Number: 2006117058

PATIENT
  Age: 63 Year
  Sex: Female
  Weight: 117.9352 kg

DRUGS (14)
  1. NEURONTIN [Suspect]
     Indication: DIABETIC NEUROPATHY
     Dosage: (300 MG, AS NEEDED)
     Dates: start: 20060501
  2. LYRICA [Suspect]
     Indication: DIABETIC NEUROPATHY
     Dates: start: 20060101, end: 20060101
  3. ALBUTEROL [Concomitant]
  4. LOPID [Concomitant]
  5. ALLEGRA [Concomitant]
  6. HUMALOG [Concomitant]
  7. ELAVIL [Concomitant]
  8. COREG [Concomitant]
  9. NITROGLYCERIN TRANSDERMAL SYSTEM (GLYCERYL TRINITRATE) [Concomitant]
  10. PRILOSEC [Concomitant]
  11. ASPIRIN [Concomitant]
  12. AMIODARONE HCL [Concomitant]
  13. COUMADIN [Concomitant]
  14. K-DUR 10 [Concomitant]

REACTIONS (22)
  - ABNORMAL BEHAVIOUR [None]
  - AGGRESSION [None]
  - ARTERIOVENOUS FISTULA OPERATION [None]
  - ATRIAL FIBRILLATION [None]
  - ATROPHY [None]
  - CARDIAC FAILURE CONGESTIVE [None]
  - CELLULITIS [None]
  - CONDITION AGGRAVATED [None]
  - CONFUSIONAL STATE [None]
  - DISCOMFORT [None]
  - DISORIENTATION [None]
  - DRUG INEFFECTIVE [None]
  - FLUID RETENTION [None]
  - GOUT [None]
  - HEART RATE IRREGULAR [None]
  - INSOMNIA [None]
  - NEUROPATHY [None]
  - OEDEMA PERIPHERAL [None]
  - PAIN IN EXTREMITY [None]
  - RESTLESS LEGS SYNDROME [None]
  - RHEUMATOID ARTHRITIS [None]
  - UNEVALUABLE EVENT [None]
